FAERS Safety Report 25899765 (Version 1)
Quarter: 2025Q4

REPORT INFORMATION
  Report Type: Spontaneous
  Country: US (occurrence: US)
  Receive Date: 20251009
  Receipt Date: 20251009
  Transmission Date: 20260118
  Serious: No
  Sender: AUROBINDO
  Company Number: US-AUROBINDO-AUR-APL-2025-041498

PATIENT
  Age: 72 Year
  Sex: Male
  Weight: 92.971 kg

DRUGS (2)
  1. ALFUZOSIN HYDROCHLORIDE EXTENDED RELEASE [Suspect]
     Active Substance: ALFUZOSIN HYDROCHLORIDE
     Indication: Prostatomegaly
     Dosage: 10 MILLIGRAM, DAILY
     Route: 048
     Dates: start: 20250711
  2. LOSARTAN [Concomitant]
     Active Substance: LOSARTAN
     Indication: Product used for unknown indication
     Dosage: UNK
     Route: 065

REACTIONS (4)
  - Product quality issue [Unknown]
  - Product odour abnormal [Unknown]
  - Product taste abnormal [Unknown]
  - Product administration error [Unknown]

NARRATIVE: CASE EVENT DATE: 20250711
